FAERS Safety Report 5779834-7 (Version None)
Quarter: 2008Q2

REPORT INFORMATION
  Report Type: 
  Country: None (occurrence: None)
  Receive Date: 20080620
  Receipt Date: 20080610
  Transmission Date: 20081010
  Serious: Yes (Other)
  Sender: FDA-Public Use
  Company Number: PHEH2006US13972

PATIENT

DRUGS (10)
  1. TOBI [Suspect]
     Indication: LUNG INFECTION
     Dosage: 300 MG, BID
     Dates: start: 20050714, end: 20050718
  2. TOBI [Suspect]
     Dosage: 300 MG, BID
     Dates: start: 20051227
  3. LIPITOR [Concomitant]
     Dosage: 10 MG, QD
     Route: 048
  4. ADVAIR DISKUS 100/50 [Concomitant]
     Dosage: 1 SPRAYS, QD
     Route: 048
  5. FLECAINIDE ACETATE [Concomitant]
     Dosage: 100 MG, BID
     Route: 048
  6. CARDIA XT [Concomitant]
     Dosage: 300 MG, QD
     Route: 048
  7. PREVACID [Concomitant]
     Dosage: 30 MG, QD
     Route: 048
  8. SINGULAIR [Concomitant]
     Dosage: 10 MG, QD
     Route: 048
  9. NASONEX [Concomitant]
     Dosage: 2 SPRAYS, PRN
     Route: 045
  10. ADVIL [Concomitant]
     Dosage: 200 MG, PRN
     Route: 048

REACTIONS (2)
  - APHONIA [None]
  - VOCAL CORD INFLAMMATION [None]
